FAERS Safety Report 20834073 (Version 1)
Quarter: 2022Q2

REPORT INFORMATION
  Report Type: 
  Country: None (occurrence: None)
  Receive Date: 20220516
  Receipt Date: 20220516
  Transmission Date: 20220720
  Serious: No
  Sender: FDA-Public Use
  Company Number: US-ROCHE-3054140

PATIENT

DRUGS (35)
  1. OCRELIZUMAB [Suspect]
     Active Substance: OCRELIZUMAB
     Dosage: FIRST ADMINISTRATION.
     Dates: start: 20211102
  2. OCRELIZUMAB [Suspect]
     Active Substance: OCRELIZUMAB
     Dosage: SECOND ADMINISTRATION. FOLLOWED BY 600 MG 6 MONTHLY.
     Dates: start: 20211116
  3. COENZYME Q10 [Concomitant]
     Active Substance: DIETARY SUPPLEMENT\UBIDECARENONE
     Dates: start: 2015
  4. PFIZER-BIONTECH COVID-19 VACCINE [Concomitant]
     Active Substance: TOZINAMERAN
     Dosage: NEXT DOSE ON: 25/MAY/2021, BOOSTER ON: 17/SEP/2021
     Dates: start: 20210504, end: 20210504
  5. ARMODAFINIL [Concomitant]
     Active Substance: ARMODAFINIL
     Dates: start: 20210405, end: 20210903
  6. ARMODAFINIL [Concomitant]
     Active Substance: ARMODAFINIL
     Dates: start: 20211206, end: 20211231
  7. ASPIRIN [Concomitant]
     Active Substance: ASPIRIN
     Dates: start: 2011
  8. CELEXA [Concomitant]
     Active Substance: CITALOPRAM HYDROBROMIDE
     Dates: start: 2011
  9. TRAZODONE [Concomitant]
     Active Substance: TRAZODONE HYDROCHLORIDE
     Dates: start: 2011
  10. FOLIC ACID [Concomitant]
     Active Substance: FOLIC ACID
     Dates: start: 2015
  11. CALCIUM CARBONATE [Concomitant]
     Active Substance: CALCIUM CARBONATE
  12. PROLIA [Concomitant]
     Active Substance: DENOSUMAB
  13. GLUCOSAMINE/CHONDROITIN [CHONDROITIN SULFATE SODIUM;GLUCOSAMINE HYDROC [Concomitant]
  14. MAGNESIUM OXIDE [Concomitant]
     Active Substance: MAGNESIUM OXIDE
  15. OMEGA 3 [Concomitant]
     Active Substance: CAPSAICIN
     Dates: start: 2015
  16. TRIAMCINOLONE [Concomitant]
     Active Substance: TRIAMCINOLONE
  17. MUCINEX [Concomitant]
     Active Substance: GUAIFENESIN
     Dates: start: 202112
  18. CLARITIN [Concomitant]
     Active Substance: LORATADINE
     Dates: start: 202112
  19. VITAMIN C [Concomitant]
     Active Substance: ASCORBIC ACID
  20. MUCINEX [Concomitant]
     Active Substance: GUAIFENESIN
     Dates: start: 202112
  21. LORATADINE [Concomitant]
     Active Substance: LORATADINE
     Dates: start: 202112
  22. VITAMIN C [Concomitant]
     Active Substance: ASCORBIC ACID
     Dates: start: 2015
  23. TRIAMCINOLONE [Concomitant]
     Active Substance: TRIAMCINOLONE
     Dates: start: 20190514
  24. OMEGA-3 FATTY ACIDS [Concomitant]
     Active Substance: OMEGA-3 FATTY ACIDS
     Dates: start: 2015
  25. MAGNESIUM OXIDE [Concomitant]
     Active Substance: MAGNESIUM OXIDE
     Dates: start: 2015
  26. GLUCOSAMINE CHONDROITIN COMPLEX ADVANV (UNK INGREDIENTS) [Concomitant]
     Dates: start: 2015
  27. DENOSUMAB [Concomitant]
     Active Substance: DENOSUMAB
     Dates: start: 2020
  28. COENZYME Q10 [Concomitant]
     Active Substance: DIETARY SUPPLEMENT\UBIDECARENONE
     Dates: start: 2015
  29. CALCIUM CARBONATE [Concomitant]
     Active Substance: CALCIUM CARBONATE
     Dates: start: 2015
  30. B COMPLEX WITH FOLIC ACID [Concomitant]
     Dates: start: 2015
  31. TRAZODONE [Concomitant]
     Active Substance: TRAZODONE HYDROCHLORIDE
     Dates: start: 2011
  32. PRAVASTATIN [Concomitant]
     Active Substance: PRAVASTATIN
  33. PRILOSEC [Concomitant]
     Active Substance: OMEPRAZOLE MAGNESIUM
     Dates: start: 2011
  34. CELEXA [Concomitant]
     Active Substance: CITALOPRAM HYDROBROMIDE
     Dates: start: 2011
  35. ASPIRIN [Concomitant]
     Active Substance: ASPIRIN
     Dates: start: 2011

REACTIONS (1)
  - COVID-19 [None]

NARRATIVE: CASE EVENT DATE: 20220218
